FAERS Safety Report 6118728-4 (Version None)
Quarter: 2009Q1

REPORT INFORMATION
  Report Type: 
  Country: None (occurrence: None)
  Receive Date: 20090314
  Receipt Date: 20090224
  Transmission Date: 20090719
  Serious: No
  Sender: FDA-Public Use
  Company Number: US-ABBOTT-09P-163-0559283-00

PATIENT
  Sex: Female
  Weight: 136.2 kg

DRUGS (5)
  1. HUMIRA [Suspect]
     Indication: RHEUMATOID ARTHRITIS
     Route: 058
     Dates: start: 20080410
  2. WELLBUTRIN [Concomitant]
     Indication: CRYING
  3. ACETAMINOPHEN AND HYDROCODONE BITARTRATE [Concomitant]
     Indication: PAIN
     Dosage: 4 - 10/500 MG TABLET DAILY
  4. VESICARE [Concomitant]
     Indication: INCONTINENCE
  5. CALCIUM WITH VITAMIN D [Concomitant]
     Indication: RHEUMATOID ARTHRITIS

REACTIONS (2)
  - BLOOD DISORDER [None]
  - SKIN LACERATION [None]
